FAERS Safety Report 9365951 (Version 2)
Quarter: 2013Q3

REPORT INFORMATION
  Report Type: Spontaneous
  Country: US (occurrence: US)
  Receive Date: 20130625
  Receipt Date: 20130717
  Transmission Date: 20140515
  Serious: No
  Sender: FDA-Public Use
  Company Number: US-PFIZER INC-2013186250

PATIENT
  Sex: Female

DRUGS (1)
  1. ADVIL [Suspect]
     Indication: MUSCLE SPASMS
     Dosage: UNK
     Route: 048

REACTIONS (4)
  - Overdose [Unknown]
  - Diarrhoea [Unknown]
  - Abdominal discomfort [Unknown]
  - Flatulence [Unknown]
